FAERS Safety Report 15919660 (Version 1)
Quarter: 2019Q1

REPORT INFORMATION
  Report Type: Spontaneous
  Country: US (occurrence: US)
  Receive Date: 20190205
  Receipt Date: 20190205
  Transmission Date: 20190417
  Serious: No
  Sender: FDA-Public Use
  Company Number: US-ROCHE-2107682

PATIENT
  Age: 8 Year

DRUGS (1)
  1. XOLAIR [Suspect]
     Active Substance: OMALIZUMAB
     Indication: PRODUCT USED FOR UNKNOWN INDICATION
     Dosage: -FEB
     Route: 058

REACTIONS (3)
  - Vomiting [Unknown]
  - Abdominal pain [Unknown]
  - Wheezing [Unknown]
